FAERS Safety Report 21297324 (Version 14)
Quarter: 2023Q2

REPORT INFORMATION
  Report Type: Report from Study
  Country: US (occurrence: US)
  Receive Date: 20220906
  Receipt Date: 20230615
  Transmission Date: 20230722
  Serious: No
  Sender: FDA-Public Use
  Company Number: US-NOVARTISTESTPH-NVSC2022US200117

PATIENT
  Age: 56 Year
  Sex: Female
  Weight: 61.23 kg

DRUGS (8)
  1. COSENTYX [Suspect]
     Active Substance: SECUKINUMAB
     Indication: Psoriasis
     Dosage: 300 MG, QW (ONCE A WEEK FOR 5 WEEKS)
     Route: 058
  2. COSENTYX [Suspect]
     Active Substance: SECUKINUMAB
     Indication: Spondyloarthropathy
     Dosage: UNK
     Route: 058
     Dates: start: 20220813
  3. COSENTYX [Suspect]
     Active Substance: SECUKINUMAB
     Dosage: 300 MG, QMO (ONCE A MONTH)
     Route: 058
  4. ALENDRONATE SODIUM [Concomitant]
     Active Substance: ALENDRONATE SODIUM
     Indication: Product used for unknown indication
     Dosage: UNK
     Route: 065
  5. LIDOCAINE [Concomitant]
     Active Substance: LIDOCAINE
     Indication: Product used for unknown indication
     Dosage: UNK
     Route: 065
  6. MELOXICAM [Concomitant]
     Active Substance: MELOXICAM
     Indication: Product used for unknown indication
     Dosage: UNK
     Route: 065
  7. PREDNISONE [Concomitant]
     Active Substance: PREDNISONE
     Indication: Product used for unknown indication
     Dosage: UNK
     Route: 065
  8. HUMIRA [Concomitant]
     Active Substance: ADALIMUMAB
     Indication: HLA-B*27 positive
     Dosage: UNK
     Route: 065

REACTIONS (21)
  - Ephelides [Unknown]
  - Bone pain [Recovering/Resolving]
  - Gait disturbance [Unknown]
  - Arthralgia [Recovering/Resolving]
  - Psoriasis [Unknown]
  - Arthritis [Unknown]
  - Rash [Unknown]
  - Peripheral swelling [Unknown]
  - Joint swelling [Unknown]
  - Fatigue [Unknown]
  - Insomnia [Unknown]
  - Back pain [Unknown]
  - Headache [Unknown]
  - Pleuritic pain [Unknown]
  - Influenza like illness [Unknown]
  - Dyspnoea [Unknown]
  - Ligament sprain [Unknown]
  - Tendon disorder [Unknown]
  - Injection site discharge [Unknown]
  - Incorrect dose administered [Unknown]
  - Drug ineffective [Unknown]

NARRATIVE: CASE EVENT DATE: 20220813
